FAERS Safety Report 13297318 (Version 1)
Quarter: 2017Q1

REPORT INFORMATION
  Report Type: Spontaneous
  Country: US (occurrence: US)
  Receive Date: 20170304
  Receipt Date: 20170304
  Transmission Date: 20170428
  Serious: Yes (Disabling)
  Sender: FDA-Public Use
  Company Number: None

PATIENT
  Age: 4 Year
  Sex: Female
  Weight: 15.75 kg

DRUGS (4)
  1. OXYLENT CHILDREN^S MULTIVITAMIN [Concomitant]
  2. RESTORE SUPPLEMENT [Concomitant]
  3. MAGNESIUM CITRATE. [Concomitant]
     Active Substance: MAGNESIUM CITRATE
  4. LAXACLEAR [Suspect]
     Active Substance: POLYETHYLENE GLYCOL 3350
     Indication: CONSTIPATION
     Dosage: QUANTITY:1 CAPFUL;?
     Route: 048
     Dates: start: 20160911, end: 20170205

REACTIONS (4)
  - Pain in extremity [None]
  - Frustration tolerance decreased [None]
  - Feeling abnormal [None]
  - Anger [None]

NARRATIVE: CASE EVENT DATE: 20160911
